FAERS Safety Report 8562665 (Version 2)
Quarter: 2013Q2

REPORT INFORMATION
  Report Type: Report from Study
  Country: FR (occurrence: FR)
  Receive Date: 20120515
  Receipt Date: 20130627
  Transmission Date: 20140414
  Serious: Yes (Hospitalization, Other)
  Sender: FDA-Public Use
  Company Number: FR-ACTELION-A-CH2012-65550

PATIENT
  Age: 6 Year
  Sex: Female
  Weight: 18 kg

DRUGS (1)
  1. ZAVESCA [Suspect]
     Indication: NIEMANN-PICK DISEASE
     Dosage: 100 MG, BID
     Route: 048
     Dates: start: 20110105

REACTIONS (2)
  - Epilepsy [Recovered/Resolved]
  - Grand mal convulsion [Recovered/Resolved]
